FAERS Safety Report 5491836-7 (Version None)
Quarter: 2007Q4

REPORT INFORMATION
  Report Type: 
  Country: None (occurrence: None)
  Receive Date: 20071022
  Receipt Date: 20071012
  Transmission Date: 20080405
  Serious: Yes (Other)
  Sender: FDA-Public Use
  Company Number: BE-BRISTOL-MYERS SQUIBB COMPANY-13492863

PATIENT
  Age: 36 Year
  Sex: Female

DRUGS (5)
  1. ATAZANAVIR SULFATE [Suspect]
     Route: 048
  2. VIREAD [Concomitant]
  3. ZIAGEN [Concomitant]
  4. EPIVIR [Concomitant]
  5. NORVIR [Concomitant]

REACTIONS (3)
  - NORMAL NEWBORN [None]
  - PREGNANCY [None]
  - PREMATURE LABOUR [None]
